FAERS Safety Report 10538887 (Version 2)
Quarter: 2015Q1

REPORT INFORMATION
  Report Type: Spontaneous
  Country: US (occurrence: US)
  Receive Date: 20141023
  Receipt Date: 20150204
  Transmission Date: 20150720
  Serious: Yes (Other)
  Sender: FDA-Public Use
  Company Number: US-GLAXOSMITHKLINE-US2014GSK011386

PATIENT
  Sex: Female

DRUGS (4)
  1. ANORO ELLIPTA [Suspect]
     Active Substance: UMECLIDINIUM BROMIDE\VILANTEROL TRIFENATATE
     Indication: COR PULMONALE CHRONIC
  2. OXYGEN. [Concomitant]
     Active Substance: OXYGEN
  3. VENTOLIN [Concomitant]
     Active Substance: ALBUTEROL SULFATE
  4. ANORO ELLIPTA [Suspect]
     Active Substance: UMECLIDINIUM BROMIDE\VILANTEROL TRIFENATATE
     Indication: BRONCHITIS
     Dosage: 62.5 ?G, U
     Dates: start: 20141010

REACTIONS (3)
  - Cardiac failure congestive [Unknown]
  - Emphysema [Unknown]
  - Pulmonary hypertension [Unknown]
